FAERS Safety Report 24003701 (Version 2)
Quarter: 2025Q1

REPORT INFORMATION
  Report Type: Spontaneous
  Country: GB (occurrence: GB)
  Receive Date: 20240624
  Receipt Date: 20250126
  Transmission Date: 20250409
  Serious: Yes (Life-Threatening, Other)
  Sender: CIPLA
  Company Number: GB-MHRA-MED-202406100847104570-RGSTN

PATIENT

DRUGS (2)
  1. FINASTERIDE [Suspect]
     Active Substance: FINASTERIDE
     Indication: Alopecia
     Dosage: 0.5 PERCENT, QD (TOPICAL SOLUTION ONCE A DAY AT 0.5%)
     Route: 061
  2. MIRTAZAPINE [Concomitant]
     Active Substance: MIRTAZAPINE
     Indication: Depression
     Route: 065

REACTIONS (9)
  - Panic disorder [Not Recovered/Not Resolved]
  - Insomnia [Not Recovered/Not Resolved]
  - Fatigue [Not Recovered/Not Resolved]
  - Decreased appetite [Not Recovered/Not Resolved]
  - Anhedonia [Not Recovered/Not Resolved]
  - Anxiety [Not Recovered/Not Resolved]
  - Depression [Not Recovered/Not Resolved]
  - Suicidal ideation [Not Recovered/Not Resolved]
  - Sexual dysfunction [Not Recovered/Not Resolved]
